FAERS Safety Report 25181712 (Version 1)
Quarter: 2025Q2

REPORT INFORMATION
  Report Type: Spontaneous
  Country: ES (occurrence: ES)
  Receive Date: 20250410
  Receipt Date: 20250410
  Transmission Date: 20250716
  Serious: Yes (Hospitalization)
  Sender: TEVA
  Company Number: None

PATIENT
  Age: 78 Year
  Sex: Female

DRUGS (2)
  1. AMLODIPINE\HYDROCHLOROTHIAZIDE\OLMESARTAN [Interacting]
     Active Substance: AMLODIPINE\HYDROCHLOROTHIAZIDE\OLMESARTAN
     Indication: Hypertension
     Dosage: 40 MG/10 MG/12.5 MG 28 TABLETS
     Route: 048
     Dates: start: 20250214, end: 20250318
  2. ESLICARBAZEPINE ACETATE [Interacting]
     Active Substance: ESLICARBAZEPINE ACETATE
     Indication: Epilepsy
     Dosage: EFG TABLETS, 30 TABLETS
     Route: 048
     Dates: start: 20250310

REACTIONS (1)
  - Hyponatraemia [Recovered/Resolved]

NARRATIVE: CASE EVENT DATE: 20250318
